FAERS Safety Report 10051640 (Version 1)
Quarter: 2014Q2

REPORT INFORMATION
  Report Type: Spontaneous
  Country: US (occurrence: US)
  Receive Date: 20140401
  Receipt Date: 20140401
  Transmission Date: 20141212
  Serious: No
  Sender: FDA-Public Use
  Company Number: US-009507513-1403USA014117

PATIENT
  Age: 87 Year
  Sex: Female

DRUGS (1)
  1. AFRIN NO DRIP EXTRA MOISTURIZING NASAL SPRAY [Suspect]
     Indication: EPISTAXIS
     Dosage: UNK, UNKNOWN

REACTIONS (3)
  - Wrong technique in drug usage process [Unknown]
  - Off label use [Unknown]
  - Product quality issue [Unknown]
